FAERS Safety Report 10245163 (Version 4)
Quarter: 2015Q2

REPORT INFORMATION
  Report Type: Spontaneous
  Country: US (occurrence: US)
  Receive Date: 20140618
  Receipt Date: 20150619
  Transmission Date: 20150821
  Serious: Yes (Disabling)
  Sender: FDA-Public Use
  Company Number: US-009507513-1406USA007854

PATIENT
  Sex: Male
  Weight: 109.84 kg

DRUGS (1)
  1. PROPECIA [Suspect]
     Active Substance: FINASTERIDE
     Indication: ALOPECIA
     Dosage: 1 MG, QD
     Route: 048
     Dates: start: 20011120, end: 20060530

REACTIONS (26)
  - Feeling abnormal [Not Recovered/Not Resolved]
  - Ejaculation disorder [Not Recovered/Not Resolved]
  - Hypertension [Unknown]
  - Visual impairment [Unknown]
  - Prostatic specific antigen increased [Unknown]
  - Cognitive disorder [Not Recovered/Not Resolved]
  - Sexual dysfunction [Not Recovered/Not Resolved]
  - Hypoaesthesia [Unknown]
  - Anoplasty [Unknown]
  - Depression [Not Recovered/Not Resolved]
  - Cyst [Unknown]
  - Asthma [Unknown]
  - Nocturia [Unknown]
  - Premature ejaculation [Unknown]
  - Erectile dysfunction [Unknown]
  - Libido decreased [Not Recovered/Not Resolved]
  - Angina pectoris [Unknown]
  - Weight increased [Unknown]
  - Anxiety [Not Recovered/Not Resolved]
  - Erectile dysfunction [Not Recovered/Not Resolved]
  - Rheumatoid arthritis [Unknown]
  - Ejaculation failure [Not Recovered/Not Resolved]
  - Arthritis [Unknown]
  - Pneumonia [Unknown]
  - Palpitations [Unknown]
  - Blood triglycerides increased [Unknown]

NARRATIVE: CASE EVENT DATE: 20040405
